FAERS Safety Report 10189648 (Version 1)
Quarter: 2014Q2

REPORT INFORMATION
  Report Type: Spontaneous
  Country: US (occurrence: US)
  Receive Date: 20140522
  Receipt Date: 20140522
  Transmission Date: 20141212
  Serious: Yes (Hospitalization, Other)
  Sender: FDA-Public Use
  Company Number: US-SANOFI-AVENTIS-2013SA083561

PATIENT
  Age: 82 Year
  Sex: Female

DRUGS (8)
  1. LANTUS SOLOSTAR [Suspect]
     Indication: TYPE 1 DIABETES MELLITUS
     Dosage: DOSE:40 UNIT(S)
     Route: 058
  2. LANTUS SOLOSTAR [Suspect]
     Indication: TYPE 2 DIABETES MELLITUS
     Dosage: DOSE:40 UNIT(S)
     Route: 058
  3. LANTUS SOLOSTAR [Suspect]
     Indication: TYPE 1 DIABETES MELLITUS
     Dosage: DOSE:40 UNIT(S)
     Route: 058
  4. LANTUS SOLOSTAR [Suspect]
     Indication: TYPE 2 DIABETES MELLITUS
     Dosage: DOSE:40 UNIT(S)
     Route: 058
  5. NOVOLOG [Suspect]
     Route: 065
  6. SOLOSTAR [Concomitant]
  7. SOLOSTAR [Concomitant]
  8. NOVOLOG MIX [Suspect]
     Dosage: USED IN MORNING AND DURING THE DAY A SLIDING SCALE FROM 2-12 UNITS
     Route: 065

REACTIONS (3)
  - Cataract [Unknown]
  - Visual acuity reduced [Unknown]
  - Infection [Unknown]
